FAERS Safety Report 5301796-7 (Version None)
Quarter: 2007Q2

REPORT INFORMATION
  Report Type: 
  Country: None (occurrence: None)
  Receive Date: 20070416
  Receipt Date: 20070416
  Transmission Date: 20071010
  Serious: Yes (Hospitalization)
  Sender: FDA-Public Use
  Company Number: None

PATIENT
  Sex: Female
  Weight: 78.9 kg

DRUGS (2)
  1. L-ASPARAGINASE [Suspect]
     Dosage: 10000 IU
     Dates: start: 20070402, end: 20070402
  2. METHOTREXATE [Suspect]
     Dosage: 5000 MG
     Dates: end: 20070402

REACTIONS (2)
  - HYPOTENSION [None]
  - LOSS OF CONSCIOUSNESS [None]
